FAERS Safety Report 5023158-2 (Version None)
Quarter: 2006Q2

REPORT INFORMATION
  Report Type: 
  Country: None (occurrence: None)
  Receive Date: 20060605
  Receipt Date: 20060525
  Transmission Date: 20061013
  Serious: Yes (Other)
  Sender: FDA-Public Use
  Company Number: 2006-03-0143

PATIENT
  Age: 61 Year
  Sex: Male
  Weight: 75 kg

DRUGS (12)
  1. PEG-INTRON [Suspect]
     Indication: HAIRY CELL LEUKAEMIA
     Dosage: 120 MCG QWK SUBCUTANEOUS
     Route: 058
     Dates: start: 20050707, end: 20060302
  2. SOLEDUM (THYME EXTRACT) [Concomitant]
  3. HYDROCORTISONE [Concomitant]
  4. LORZAAR (LOSARTAN POTASSIUM) [Concomitant]
  5. ASTONIN-H [Concomitant]
  6. PLAVIX [Concomitant]
  7. ATORVASTATIN CALCIUM [Concomitant]
  8. EZETROL (EZETIMIBE) [Concomitant]
  9. SPONDYVIT [Concomitant]
  10. THIOCTACID [Concomitant]
  11. TEBONIN [Concomitant]
  12. PANPUR [Concomitant]

REACTIONS (3)
  - ALVEOLITIS [None]
  - PNEUMONITIS [None]
  - RESPIRATORY MONILIASIS [None]
